FAERS Safety Report 7270281-8 (Version None)
Quarter: 2011Q1

REPORT INFORMATION
  Report Type: 
  Country: None (occurrence: None)
  Receive Date: 20110202
  Receipt Date: 20110124
  Transmission Date: 20110831
  Serious: Yes (Hospitalization)
  Sender: FDA-Public Use
  Company Number: FR-KINGPHARMUSA00001-K201100102

PATIENT
  Age: 72 Year
  Sex: Female

DRUGS (6)
  1. MOPRAL [Suspect]
     Indication: INTENTIONAL OVERDOSE
     Dosage: UNK, SINGLE
     Route: 048
     Dates: start: 20101208, end: 20101208
  2. HYDROCHLOROTHIAZIDE [Suspect]
     Indication: INTENTIONAL OVERDOSE
     Dosage: UNK, SINGLE
     Route: 048
  3. ACETAMINOPHEN AND TRAMADOL HCL [Suspect]
     Indication: INTENTIONAL OVERDOSE
     Dosage: UNK
     Route: 048
     Dates: start: 20101208, end: 20101208
  4. NEBIVOLOL [Suspect]
     Indication: INTENTIONAL OVERDOSE
     Dosage: UNK, SINGLE
     Route: 048
     Dates: start: 20101208, end: 20101208
  5. RIVOTRIL [Concomitant]
     Dosage: UNK
     Dates: start: 20101208, end: 20101208
  6. ALTACE [Suspect]
     Indication: INTENTIONAL OVERDOSE
     Dosage: UNK, SINGLE
     Route: 048
     Dates: start: 20101208, end: 20101208

REACTIONS (2)
  - MULTIPLE DRUG OVERDOSE INTENTIONAL [None]
  - BRADYCARDIA [None]
